FAERS Safety Report 8164596-9 (Version None)
Quarter: 2012Q1

REPORT INFORMATION
  Report Type: 
  Country: None (occurrence: None)
  Receive Date: 20120227
  Receipt Date: 20120216
  Transmission Date: 20120608
  Serious: Yes (Disabling)
  Sender: FDA-Public Use
  Company Number: BR-AMGEN-BRASP2012010984

PATIENT
  Age: 52 Year
  Sex: Female

DRUGS (1)
  1. ENBREL [Suspect]
     Indication: RHEUMATOID ARTHRITIS
     Dosage: 50 MG, 2X/WEEK
     Route: 058
     Dates: start: 20111201, end: 20120101

REACTIONS (3)
  - PSORIATIC ARTHROPATHY [None]
  - PAIN [None]
  - MOBILITY DECREASED [None]
